FAERS Safety Report 6427404-X (Version None)
Quarter: 2009Q4

REPORT INFORMATION
  Report Type: 
  Country: None (occurrence: None)
  Receive Date: 20091104
  Receipt Date: 20091022
  Transmission Date: 20100525
  Serious: Yes (Other)
  Sender: FDA-Public Use
  Company Number: CO-PFIZER INC-2009288677

PATIENT
  Sex: Female

DRUGS (4)
  1. LYRICA [Suspect]
  2. IBUPROFEN [Concomitant]
     Indication: PAIN
  3. NAPROXEN [Concomitant]
     Indication: PAIN
  4. TRIMEBUTINE MALEATE [Concomitant]
     Indication: IRRITABLE BOWEL SYNDROME

REACTIONS (1)
  - RESPIRATORY ARREST [None]
